FAERS Safety Report 9758380 (Version 1)
Quarter: 2013Q4

REPORT INFORMATION
  Report Type: Spontaneous
  Country: US (occurrence: None)
  Receive Date: 20131213
  Receipt Date: 20131213
  Transmission Date: 20140711
  Serious: No
  Sender: FDA-Public Use
  Company Number: None

PATIENT
  Age: 38 Year
  Sex: Male
  Weight: 79.83 kg

DRUGS (3)
  1. INSULIN [Suspect]
  2. CRESTOR [Concomitant]
  3. LISNOPRIL [Concomitant]

REACTIONS (2)
  - Confusional state [None]
  - Blood glucose decreased [None]
